FAERS Safety Report 7435606-9 (Version None)
Quarter: 2011Q2

REPORT INFORMATION
  Report Type: 
  Country: None (occurrence: None)
  Receive Date: 20110418
  Receipt Date: 20110401
  Transmission Date: 20111010
  Serious: Yes (Death)
  Sender: FDA-Public Use
  Company Number: AE 2011-136

PATIENT
  Age: 49 Year
  Sex: Male
  Weight: 79 kg

DRUGS (3)
  1. CLOZAPINE [Suspect]
     Dosage: 200 MG DAILY PO
     Route: 048
  2. ORPHENADINE [Concomitant]
  3. QUETIAPINE [Concomitant]

REACTIONS (8)
  - PULMONARY CONGESTION [None]
  - PULMONARY OEDEMA [None]
  - CARDIOMEGALY [None]
  - HEPATIC NECROSIS [None]
  - GASTROINTESTINAL HYPOMOTILITY [None]
  - LEFT VENTRICULAR HYPERTROPHY [None]
  - ASCITES [None]
  - ACUTE HEPATIC FAILURE [None]
